FAERS Safety Report 6999921-5 (Version None)
Quarter: 2010Q3

REPORT INFORMATION
  Report Type: 
  Country: None (occurrence: None)
  Receive Date: 20100920
  Receipt Date: 20090831
  Transmission Date: 20110219
  Serious: No
  Sender: FDA-Public Use
  Company Number: US-ASTRAZENECA-2009SE10985

PATIENT
  Age: 32 Year
  Sex: Male

DRUGS (4)
  1. SEROQUEL [Suspect]
     Route: 048
     Dates: start: 20081201
  2. SEROQUEL [Suspect]
     Route: 048
  3. KLONOPIN [Concomitant]
  4. RISPERDAL [Concomitant]

REACTIONS (1)
  - ENURESIS [None]
